FAERS Safety Report 21757250 (Version 3)
Quarter: 2025Q2

REPORT INFORMATION
  Report Type: Spontaneous
  Country: HU (occurrence: HU)
  Receive Date: 20221220
  Receipt Date: 20250612
  Transmission Date: 20250717
  Serious: Yes (Other)
  Sender: ABBVIE
  Company Number: HU-002147023-NVSC2022HU282438

PATIENT
  Sex: Female

DRUGS (6)
  1. LEUPROLIDE ACETATE [Suspect]
     Active Substance: LEUPROLIDE ACETATE
     Indication: Breast cancer metastatic
     Route: 065
     Dates: start: 202206
  2. LEUPROLIDE ACETATE [Suspect]
     Active Substance: LEUPROLIDE ACETATE
     Indication: Hormone receptor positive HER2 negative breast cancer
  3. DENOSUMAB [Concomitant]
     Active Substance: DENOSUMAB
     Indication: Breast cancer metastatic
     Route: 065
     Dates: start: 202206
  4. KISQALI [Suspect]
     Active Substance: RIBOCICLIB SUCCINATE
     Indication: Breast cancer metastatic
     Route: 065
     Dates: start: 202206
  5. ANASTROZOLE [Concomitant]
     Active Substance: ANASTROZOLE
     Indication: Hormone receptor positive HER2 negative breast cancer
     Route: 065
     Dates: start: 202407
  6. LETROZOLE [Suspect]
     Active Substance: LETROZOLE
     Indication: Hormone receptor positive breast cancer
     Route: 065
     Dates: start: 202206, end: 202407

REACTIONS (7)
  - Neutropenia [Recovered/Resolved]
  - Product use in unapproved indication [Unknown]
  - Weight increased [Unknown]
  - Periprosthetic metallosis [Unknown]
  - Metastases to bone [Unknown]
  - Arthralgia [Unknown]
  - Device breakage [Unknown]

NARRATIVE: CASE EVENT DATE: 20220101
